FAERS Safety Report 6292528-7 (Version None)
Quarter: 2009Q3

REPORT INFORMATION
  Report Type: 
  Country: None (occurrence: None)
  Receive Date: 20090731
  Receipt Date: 20090723
  Transmission Date: 20100115
  Serious: Yes (Hospitalization)
  Sender: FDA-Public Use
  Company Number: AU-ASTRAZENECA-2009SE05650

PATIENT
  Age: 26206 Day
  Sex: Male

DRUGS (4)
  1. ATACAND HCT [Suspect]
     Dosage: 16/12.5 MG DAILY
     Route: 048
     Dates: start: 20070920, end: 20071003
  2. ASPIRIN [Concomitant]
     Route: 048
  3. PRAVASTATIN SODIUM [Concomitant]
     Route: 048
  4. RABEPRAZOLE SODIUM [Concomitant]
     Route: 048

REACTIONS (3)
  - ANGINA UNSTABLE [None]
  - DYSPNOEA [None]
  - HYPONATRAEMIA [None]
